FAERS Safety Report 16564610 (Version 1)
Quarter: 2019Q3

REPORT INFORMATION
  Report Type: Spontaneous
  Country: US (occurrence: US)
  Receive Date: 20190711
  Receipt Date: 20190711
  Transmission Date: 20191004
  Serious: Yes (Hospitalization)
  Sender: FDA-Public Use
  Company Number: None

PATIENT
  Age: 66 Year
  Sex: Male
  Weight: 89.4 kg

DRUGS (4)
  1. METFORMIN [Concomitant]
     Active Substance: METFORMIN HYDROCHLORIDE
     Dates: start: 20150701
  2. MULTIVITAMIN [Concomitant]
     Active Substance: VITAMINS
     Dates: start: 20180701
  3. INVOKANA [Suspect]
     Active Substance: CANAGLIFLOZIN
     Indication: TYPE 2 DIABETES MELLITUS
     Route: 048
     Dates: start: 20180201, end: 20190708
  4. CALCIUM [Concomitant]
     Active Substance: CALCIUM
     Dates: start: 20180701

REACTIONS (3)
  - Diabetic ketoacidosis [None]
  - Acute kidney injury [None]
  - Dehydration [None]

NARRATIVE: CASE EVENT DATE: 20190710
